FAERS Safety Report 9452554 (Version 1)
Quarter: 2013Q3

REPORT INFORMATION
  Report Type: Spontaneous
  Country: US (occurrence: US)
  Receive Date: 20130812
  Receipt Date: 20130812
  Transmission Date: 20140515
  Serious: Yes (Other)
  Sender: FDA-Public Use
  Company Number: US-PFIZER INC-2013228014

PATIENT
  Age: 66 Year
  Sex: Female
  Weight: 65.76 kg

DRUGS (11)
  1. TOVIAZ [Suspect]
     Indication: HYPERTONIC BLADDER
     Dosage: 8 MG, 1X/DAY
     Route: 048
     Dates: start: 20130621
  2. DIOVAN HCT [Concomitant]
     Dosage: 160/25 MG, UNK
  3. PREVACID [Concomitant]
     Dosage: 30 MG, UNK
  4. CRESTOR [Concomitant]
     Dosage: 10 MG, UNK
  5. VITAMIN D3 [Concomitant]
     Dosage: 2000 IU, UNK
  6. XANAX [Concomitant]
     Indication: SLEEP DISORDER
     Dosage: 0.5 MG (TWO TABLETS OF 0.25MG AT ONCE), 1X/DAY
  7. ASPIRIN [Concomitant]
     Dosage: 81 MG, UNK
  8. MILK OF MAGNESIA [Concomitant]
     Dosage: UNK
  9. LINZESS [Concomitant]
     Dosage: 145 UG, UNK
  10. COLACE [Concomitant]
     Dosage: UNK
  11. ALLEGRA [Concomitant]
     Indication: HYPERSENSITIVITY
     Dosage: UNK

REACTIONS (3)
  - Vision blurred [Not Recovered/Not Resolved]
  - Constipation [Not Recovered/Not Resolved]
  - Dry mouth [Not Recovered/Not Resolved]
